FAERS Safety Report 5897166-3 (Version None)
Quarter: 2008Q3

REPORT INFORMATION
  Report Type: 
  Country: None (occurrence: None)
  Receive Date: 20080923
  Receipt Date: 20080910
  Transmission Date: 20090109
  Serious: Yes (Other)
  Sender: FDA-Public Use
  Company Number: 238670J08USA

PATIENT
  Age: 59 Year
  Sex: Female
  Weight: 127.0072 kg

DRUGS (9)
  1. REBIF [Suspect]
     Indication: MULTIPLE SCLEROSIS
     Dosage: 22 MCG, 3 IN 1 WEEKS, SUBCUTANEOUS
     Route: 058
     Dates: start: 20070118, end: 20080810
  2. BACLOFEN [Concomitant]
  3. NEURONTIN [Concomitant]
  4. LYRICA [Concomitant]
  5. HYZAAR [Concomitant]
  6. VERAPAMIL [Concomitant]
  7. PREDNISONE [Concomitant]
  8. NEXIUM [Concomitant]
  9. VICODIN [Concomitant]

REACTIONS (7)
  - BIOPSY LYMPH GLAND ABNORMAL [None]
  - COMPLEX REGIONAL PAIN SYNDROME [None]
  - CONDITION AGGRAVATED [None]
  - LUNG NEOPLASM [None]
  - LYMPHADENOPATHY [None]
  - NEURALGIA [None]
  - TRIGEMINAL NEURALGIA [None]
